FAERS Safety Report 24023212 (Version 3)
Quarter: 2024Q3

REPORT INFORMATION
  Report Type: Report from Study
  Country: CA (occurrence: CA)
  Receive Date: 20240627
  Receipt Date: 20240710
  Transmission Date: 20241017
  Serious: No
  Sender: ROCHE
  Company Number: CA-ROCHE-3558233

PATIENT
  Age: 83 Year
  Sex: Male

DRUGS (4)
  1. VABYSMO [Suspect]
     Active Substance: FARICIMAB\FARICIMAB-SVOA
     Indication: Age-related macular degeneration
     Dosage: IN LEFT EYE??RIGHT EYE ON 04 OCTOBER 2023
     Route: 050
     Dates: start: 20230906
  2. VABYSMO [Suspect]
     Active Substance: FARICIMAB\FARICIMAB-SVOA
     Dosage: IN RIGHT EYE
     Route: 050
     Dates: start: 20231004
  3. PREDNISOLONE [Concomitant]
     Active Substance: PREDNISOLONE
  4. PRED FORTE [Concomitant]
     Active Substance: PREDNISOLONE ACETATE

REACTIONS (3)
  - Vitreous floaters [Unknown]
  - Uveitis [Unknown]
  - Ocular vasculitis [Unknown]
